FAERS Safety Report 25144018 (Version 1)
Quarter: 2025Q2

REPORT INFORMATION
  Report Type: Spontaneous
  Country: IT (occurrence: IT)
  Receive Date: 20250401
  Receipt Date: 20250401
  Transmission Date: 20250716
  Serious: Yes (Death, Other)
  Sender: AUROBINDO
  Company Number: IT-ASTRAZENECA-202502EEA027734IT

PATIENT
  Sex: Female

DRUGS (4)
  1. CARBOPLATIN [Suspect]
     Active Substance: CARBOPLATIN
     Indication: Product used for unknown indication
     Route: 065
  2. DURVALUMAB [Suspect]
     Active Substance: DURVALUMAB
     Indication: Product used for unknown indication
     Route: 065
  3. TREMELIMUMAB [Suspect]
     Active Substance: TREMELIMUMAB
     Indication: Product used for unknown indication
     Route: 065
  4. GEMCITABINE [Suspect]
     Active Substance: GEMCITABINE
     Indication: Product used for unknown indication
     Route: 065

REACTIONS (6)
  - Death [Fatal]
  - Disease progression [Unknown]
  - Neoplasm recurrence [Unknown]
  - Medication error [Unknown]
  - Pain [Unknown]
  - Weight decreased [Unknown]
